FAERS Safety Report 8496688 (Version 7)
Quarter: 2013Q1

REPORT INFORMATION
  Report Type: Report from Study
  Country: DE (occurrence: DE)
  Receive Date: 20120405
  Receipt Date: 20130208
  Transmission Date: 20140127
  Serious: Yes (Hospitalization)
  Sender: FDA-Public Use
  Company Number: DE-ROCHE-1052972

PATIENT
  Age: 29 Year
  Sex: Female
  Weight: 46 kg

DRUGS (6)
  1. VEMURAFENIB [Suspect]
     Indication: MALIGNANT MELANOMA
     Dosage: LAST DOSE PRIOR TO SAE 21/MAR/2012
     Route: 048
     Dates: start: 20120223
  2. ARANESP [Concomitant]
     Route: 065
     Dates: start: 2012
  3. RAMIPRIL [Concomitant]
     Route: 065
     Dates: start: 20120301
  4. RAPAMUNE [Concomitant]
     Route: 065
     Dates: start: 2005
  5. METOCLOPRAMIDE [Concomitant]
     Dosage: TOTAL DAILY DOSE 20/DROP
     Route: 065
     Dates: start: 20120312
  6. PARACETAMOL [Concomitant]
     Route: 065
     Dates: start: 20120308

REACTIONS (1)
  - Panniculitis [Not Recovered/Not Resolved]
